FAERS Safety Report 19516204 (Version 3)
Quarter: 2021Q3

REPORT INFORMATION
  Report Type: Spontaneous
  Country: US (occurrence: US)
  Receive Date: 20210709
  Receipt Date: 20210831
  Transmission Date: 20211014
  Serious: No
  Sender: FDA-Public Use
  Company Number: US-ASTELLAS-2021US010459

PATIENT
  Sex: Female

DRUGS (1)
  1. MYRBETRIQ [Suspect]
     Active Substance: MIRABEGRON
     Indication: NOCTURIA
     Route: 048
     Dates: start: 202102

REACTIONS (3)
  - Urinary hesitation [Recovered/Resolved]
  - Product use in unapproved indication [Unknown]
  - Urine output increased [Recovered/Resolved]

NARRATIVE: CASE EVENT DATE: 202102
